FAERS Safety Report 10247736 (Version 1)
Quarter: 2014Q2

REPORT INFORMATION
  Report Type: Spontaneous
  Country: US (occurrence: US)
  Receive Date: 20140619
  Receipt Date: 20140619
  Transmission Date: 20141212
  Serious: No
  Sender: FDA-Public Use
  Company Number: US-BAYER-2014-084317

PATIENT
  Age: 57 Year
  Sex: Female
  Weight: 118 kg

DRUGS (2)
  1. ALEVE LIQUID GELS [Suspect]
     Indication: ANALGESIC THERAPY
     Dosage: 2 DF, PRN
     Route: 048
  2. ALEVE CAPLET [Suspect]
     Indication: ANALGESIC THERAPY
     Dosage: 2 DF, PRN
     Route: 048

REACTIONS (2)
  - Extra dose administered [Not Recovered/Not Resolved]
  - Intentional product misuse [Not Recovered/Not Resolved]
